FAERS Safety Report 7119176-0 (Version None)
Quarter: 2010Q4

REPORT INFORMATION
  Report Type: 
  Country: None (occurrence: None)
  Receive Date: 20101123
  Receipt Date: 20101118
  Transmission Date: 20110411
  Serious: Yes (Life-Threatening, Hospitalization)
  Sender: FDA-Public Use
  Company Number: FR-ROCHE-743107

PATIENT
  Age: 58 Year
  Sex: Female

DRUGS (3)
  1. RIVOTRIL [Suspect]
     Dosage: STRENGTH: 2.5 MG/ML. SOLUTION IN DROP. TAKEN IN THE EVENING
     Route: 048
     Dates: end: 20100927
  2. SEROPLEX [Suspect]
     Dosage: TAKEN IN THE EVENING
     Route: 065
  3. DAFALGAN [Concomitant]

REACTIONS (2)
  - COMA [None]
  - DRUG TOXICITY [None]
